FAERS Safety Report 24116122 (Version 2)
Quarter: 2024Q3

REPORT INFORMATION
  Report Type: Report from Study
  Country: CO (occurrence: CO)
  Receive Date: 20240722
  Receipt Date: 20240801
  Transmission Date: 20241016
  Serious: Yes (Death, Other)
  Sender: REGENERON
  Company Number: CO-SA-SAC20240716000232

PATIENT
  Age: 80 Year
  Sex: Female

DRUGS (2)
  1. PRALUENT [Suspect]
     Active Substance: ALIROCUMAB
     Indication: Hypercholesterolaemia
     Dosage: UNK, QOW
     Route: 058
     Dates: start: 20190719, end: 2024
  2. PRALUENT [Suspect]
     Active Substance: ALIROCUMAB
     Indication: Dyslipidaemia

REACTIONS (2)
  - Arrhythmia [Fatal]
  - Myocardial infarction [Fatal]

NARRATIVE: CASE EVENT DATE: 20240708
